FAERS Safety Report 4663717-X (Version None)
Quarter: 2005Q2

REPORT INFORMATION
  Report Type: 
  Country: None (occurrence: None)
  Receive Date: 20050516
  Receipt Date: 20050401
  Transmission Date: 20051028
  Serious: Yes (Hospitalization)
  Sender: FDA-Public Use
  Company Number: 200414329BCC

PATIENT
  Sex: Female

DRUGS (5)
  1. RID MOUSSE [Suspect]
     Indication: LICE INFESTATION
     Dosage: TRANSPLACENTAL
     Route: 064
  2. NIX [Suspect]
  3. ZOFRAN [Suspect]
     Dates: start: 20030402
  4. MECLIZINE [Suspect]
  5. PRENATAL VITAMINS [Concomitant]

REACTIONS (4)
  - DRUG EXPOSURE DURING PREGNANCY [None]
  - JAUNDICE NEONATAL [None]
  - PREMATURE BABY [None]
  - RETICULOCYTE COUNT INCREASED [None]
